FAERS Safety Report 16500103 (Version 1)
Quarter: 2019Q3

REPORT INFORMATION
  Report Type: Spontaneous
  Country: US (occurrence: US)
  Receive Date: 20190701
  Receipt Date: 20190701
  Transmission Date: 20191004
  Serious: No
  Sender: FDA-Public Use
  Company Number: US-BAYER-2019-124018

PATIENT
  Age: 74 Year
  Sex: Female
  Weight: 72 kg

DRUGS (4)
  1. CLARITIN [Suspect]
     Active Substance: LORATADINE
     Indication: NASOPHARYNGITIS
  2. BENADRYL [Suspect]
     Active Substance: DIPHENHYDRAMINE HYDROCHLORIDE
  3. MUCINEX [Suspect]
     Active Substance: GUAIFENESIN
  4. CLARITIN [Suspect]
     Active Substance: LORATADINE
     Indication: HYPERSENSITIVITY
     Dosage: 1 DF
     Route: 048

REACTIONS (4)
  - Urticaria [Unknown]
  - Rash papular [Recovering/Resolving]
  - Pruritus [Recovering/Resolving]
  - Extra dose administered [Unknown]
